FAERS Safety Report 17464048 (Version 1)
Quarter: 2020Q1

REPORT INFORMATION
  Report Type: Spontaneous
  Country: US (occurrence: US)
  Receive Date: 20200226
  Receipt Date: 20200226
  Transmission Date: 20200409
  Serious: No
  Sender: FDA-Public Use
  Company Number: US-MYLANLABS-2020M1017893

PATIENT
  Sex: Female
  Weight: 73 kg

DRUGS (4)
  1. ESTRADIOL TRANSDERMAL SYSTEM [Suspect]
     Active Substance: ESTRADIOL
     Indication: MENOPAUSAL SYMPTOMS
     Dosage: TWICE WEEKLY
     Route: 062
     Dates: start: 201911
  2. PROGESTERONE. [Concomitant]
     Active Substance: PROGESTERONE
  3. EFFEXOR [Concomitant]
     Active Substance: VENLAFAXINE HYDROCHLORIDE
  4. TESTOSTERONE. [Concomitant]
     Active Substance: TESTOSTERONE

REACTIONS (5)
  - Menopausal symptoms [Not Recovered/Not Resolved]
  - Aphasia [Not Recovered/Not Resolved]
  - Fatigue [Not Recovered/Not Resolved]
  - Urinary incontinence [Not Recovered/Not Resolved]
  - Night sweats [Not Recovered/Not Resolved]
